FAERS Safety Report 6294270-5 (Version None)
Quarter: 2009Q3

REPORT INFORMATION
  Report Type: 
  Country: None (occurrence: None)
  Receive Date: 20090803
  Receipt Date: 20090519
  Transmission Date: 20100115
  Serious: No
  Sender: FDA-Public Use
  Company Number: A0780988A

PATIENT
  Age: 25 Year
  Sex: Male

DRUGS (1)
  1. NICORETTE [Suspect]
     Dates: start: 20090421, end: 20090427

REACTIONS (6)
  - DYSPHAGIA [None]
  - HYPERSENSITIVITY [None]
  - LOCAL SWELLING [None]
  - OROPHARYNGEAL PAIN [None]
  - PHARYNGEAL OEDEMA [None]
  - SWELLING FACE [None]
